FAERS Safety Report 7074676-7 (Version None)
Quarter: 2010Q4

REPORT INFORMATION
  Report Type: 
  Country: None (occurrence: None)
  Receive Date: 20101029
  Receipt Date: 20101021
  Transmission Date: 20110411
  Serious: Yes (Death)
  Sender: FDA-Public Use
  Company Number: B0681623A

PATIENT
  Sex: Male
  Weight: 100 kg

DRUGS (1)
  1. ZANAMIVIR [Suspect]
     Dosage: 250MG TWICE PER DAY
     Route: 042

REACTIONS (5)
  - CHILLS [None]
  - COUGH [None]
  - DEATH [None]
  - DYSPNOEA [None]
  - PYREXIA [None]
